FAERS Safety Report 4889434-9 (Version None)
Quarter: 2006Q1

REPORT INFORMATION
  Report Type: 
  Country: None (occurrence: None)
  Receive Date: 20060124
  Receipt Date: 20060117
  Transmission Date: 20060701
  Serious: Yes (Hospitalization)
  Sender: FDA-Public Use
  Company Number: PHBS2006NZ01019

PATIENT
  Age: 58 Year
  Sex: Female

DRUGS (6)
  1. CLOZARIL [Suspect]
     Dosage: 400 MG, QHS
     Route: 048
     Dates: start: 19970605, end: 20050116
  2. CLOZARIL [Suspect]
     Dosage: 300 MG, QHS
     Route: 048
     Dates: start: 20050117
  3. CEFACLOR [Concomitant]
     Dosage: 500 MG TID OR QID
     Route: 048
     Dates: start: 20051201
  4. VALPROATE SODIUM [Concomitant]
     Dosage: 500 MG, BID
     Route: 048
  5. LOPERAMIDE [Concomitant]
     Dosage: 2 MG, PRN
  6. PROCYCLIDINE HYDROCHLORIDE 2MG TAB [Concomitant]
     Dosage: 5 MG/D

REACTIONS (5)
  - DRUG LEVEL INCREASED [None]
  - FATIGUE [None]
  - HYSTERECTOMY [None]
  - INFECTION [None]
  - MALAISE [None]
